FAERS Safety Report 4472808-8 (Version None)
Quarter: 2004Q4

REPORT INFORMATION
  Report Type: 
  Country: None (occurrence: None)
  Receive Date: 20041013
  Receipt Date: 20041001
  Transmission Date: 20050328
  Serious: Yes (Hospitalization)
  Sender: FDA-Public Use
  Company Number: PHRM2004FR02964

PATIENT
  Age: 80 Year
  Sex: Female

DRUGS (5)
  1. FEMARA [Suspect]
     Indication: BREAST CANCER FEMALE
     Dosage: 2.5 MG, QD
     Route: 048
     Dates: start: 20040401, end: 20040916
  2. ISOPTIN [Concomitant]
     Indication: CORONARY ARTERY INSUFFICIENCY
  3. PREVISCAN [Concomitant]
  4. DIAMICRON [Concomitant]
     Indication: DIABETES MELLITUS NON-INSULIN-DEPENDENT
  5. BRONCHODUAL [Concomitant]

REACTIONS (1)
  - INTERSTITIAL LUNG DISEASE [None]
